FAERS Safety Report 26013917 (Version 1)
Quarter: 2025Q4

REPORT INFORMATION
  Report Type: Spontaneous
  Country: EU (occurrence: EU)
  Receive Date: 20251108
  Receipt Date: 20251108
  Transmission Date: 20260118
  Serious: Yes (Hospitalization, Disabling, Other)
  Sender: AUROBINDO
  Company Number: EU-THERAMEX-2024000373

PATIENT
  Age: 53 Year
  Sex: Female

DRUGS (39)
  1. LEVETIRACETAM [Suspect]
     Active Substance: LEVETIRACETAM
     Indication: Epilepsy
     Dosage: UNK
     Route: 065
     Dates: start: 20211125
  2. LEVETIRACETAM [Suspect]
     Active Substance: LEVETIRACETAM
     Dosage: UNK
     Route: 065
     Dates: start: 20220509
  3. NOMEGESTROL [Suspect]
     Active Substance: NOMEGESTROL
     Indication: Intermenstrual bleeding
     Dosage: UNK
     Route: 048
     Dates: start: 20210113
  4. NOMEGESTROL [Suspect]
     Active Substance: NOMEGESTROL
     Indication: Heavy menstrual bleeding
     Dosage: UNK
     Route: 048
     Dates: start: 20210409
  5. NOMEGESTROL [Suspect]
     Active Substance: NOMEGESTROL
     Dosage: UNK
     Route: 048
     Dates: start: 20210624
  6. NOMEGESTROL [Suspect]
     Active Substance: NOMEGESTROL
     Dosage: UNK
     Route: 048
     Dates: start: 20201216
  7. NOMEGESTROL [Suspect]
     Active Substance: NOMEGESTROL
     Dosage: UNK
     Route: 048
     Dates: start: 20200925
  8. NOMEGESTROL [Suspect]
     Active Substance: NOMEGESTROL
     Dosage: UNK
     Route: 048
     Dates: start: 20210522
  9. NOMEGESTROL [Suspect]
     Active Substance: NOMEGESTROL
     Dosage: UNK
     Route: 048
     Dates: start: 20201017
  10. NOMEGESTROL [Suspect]
     Active Substance: NOMEGESTROL
     Dosage: UNK
     Route: 048
     Dates: start: 20210210
  11. NOMEGESTROL [Suspect]
     Active Substance: NOMEGESTROL
     Dosage: UNK
     Route: 048
     Dates: start: 20201118
  12. NOMEGESTROL [Suspect]
     Active Substance: NOMEGESTROL
     Dosage: UNK
     Route: 048
     Dates: start: 20210312
  13. NOMEGESTROL ACETATE [Suspect]
     Active Substance: NOMEGESTROL ACETATE
     Indication: Intermenstrual bleeding
     Dosage: UNK
     Route: 048
     Dates: start: 20150215
  14. NOMEGESTROL ACETATE [Suspect]
     Active Substance: NOMEGESTROL ACETATE
     Indication: Heavy menstrual bleeding
     Dosage: UNK
     Route: 048
     Dates: start: 20181108
  15. NOMEGESTROL ACETATE [Suspect]
     Active Substance: NOMEGESTROL ACETATE
     Dosage: UNK
     Route: 048
     Dates: start: 20210630
  16. NOMEGESTROL ACETATE [Suspect]
     Active Substance: NOMEGESTROL ACETATE
     Indication: Intermenstrual bleeding
     Dosage: UNK
     Route: 065
     Dates: start: 20120810
  17. NOMEGESTROL ACETATE [Suspect]
     Active Substance: NOMEGESTROL ACETATE
     Indication: Heavy menstrual bleeding
     Dosage: UNK
     Route: 065
     Dates: start: 20130105
  18. NOMEGESTROL ACETATE [Suspect]
     Active Substance: NOMEGESTROL ACETATE
     Dosage: UNK
     Route: 065
     Dates: start: 20131204
  19. NOMEGESTROL ACETATE [Suspect]
     Active Substance: NOMEGESTROL ACETATE
     Dosage: UNK
     Route: 065
     Dates: start: 20141112
  20. NOMEGESTROL ACETATE [Suspect]
     Active Substance: NOMEGESTROL ACETATE
     Dosage: UNK
     Route: 065
     Dates: start: 20151221
  21. NOMEGESTROL ACETATE [Suspect]
     Active Substance: NOMEGESTROL ACETATE
     Dosage: UNK
     Route: 065
     Dates: start: 20150603
  22. NOMEGESTROL ACETATE [Suspect]
     Active Substance: NOMEGESTROL ACETATE
     Dosage: UNK
     Route: 065
     Dates: start: 20160713
  23. NOMEGESTROL ACETATE [Suspect]
     Active Substance: NOMEGESTROL ACETATE
     Indication: Product used for unknown indication
     Dosage: UNK
     Route: 065
     Dates: start: 20190221
  24. NOMEGESTROL ACETATE [Suspect]
     Active Substance: NOMEGESTROL ACETATE
     Indication: Product used for unknown indication
     Dosage: UNK
     Route: 065
     Dates: start: 201911
  25. NOMEGESTROL ACETATE [Suspect]
     Active Substance: NOMEGESTROL ACETATE
     Indication: Intermenstrual bleeding
     Dosage: UNK
     Route: 065
     Dates: start: 20180215
  26. NOMEGESTROL ACETATE [Suspect]
     Active Substance: NOMEGESTROL ACETATE
     Dosage: UNK
     Route: 065
     Dates: start: 20121108
  27. CHLORMADINONE ACETATE [Suspect]
     Active Substance: CHLORMADINONE ACETATE
     Indication: Intermenstrual bleeding
     Dosage: UNK
     Route: 065
     Dates: start: 20101101, end: 201012
  28. CHLORMADINONE ACETATE [Suspect]
     Active Substance: CHLORMADINONE ACETATE
     Indication: Heavy menstrual bleeding
  29. NOMEGESTROL ACETATE [Suspect]
     Active Substance: NOMEGESTROL ACETATE
     Indication: Heavy menstrual bleeding
     Dosage: UNK
     Route: 065
     Dates: start: 20190318
  30. NOMEGESTROL ACETATE [Suspect]
     Active Substance: NOMEGESTROL ACETATE
     Indication: Intermenstrual bleeding
  31. NOMEGESTROL ACETATE [Suspect]
     Active Substance: NOMEGESTROL ACETATE
     Indication: Intermenstrual bleeding
     Dosage: UNK
     Route: 048
     Dates: start: 20190516
  32. NOMEGESTROL ACETATE [Suspect]
     Active Substance: NOMEGESTROL ACETATE
     Indication: Heavy menstrual bleeding
     Dosage: UNK
     Route: 048
     Dates: start: 20190806
  33. NOMEGESTROL ACETATE [Suspect]
     Active Substance: NOMEGESTROL ACETATE
     Dosage: UNK
     Route: 048
     Dates: start: 20190711
  34. NOMEGESTROL ACETATE [Suspect]
     Active Substance: NOMEGESTROL ACETATE
     Dosage: UNK
     Route: 048
     Dates: start: 20190411
  35. KEPPRA [Suspect]
     Active Substance: LEVETIRACETAM
     Indication: Epilepsy
     Dosage: 2 DOSAGE FORM, ONCE A DAY, (TWO KEPPRA TABLETS PER DAY)
     Route: 065
     Dates: start: 20220626
  36. PROMEGESTONE [Suspect]
     Active Substance: PROMEGESTONE
     Indication: Intermenstrual bleeding
     Dosage: UNK
     Route: 048
     Dates: start: 20190221
  37. PROMEGESTONE [Suspect]
     Active Substance: PROMEGESTONE
     Indication: Heavy menstrual bleeding
     Dosage: UNK
     Route: 048
     Dates: start: 201911
  38. PROMEGESTONE [Suspect]
     Active Substance: PROMEGESTONE
     Dosage: UNK
     Route: 048
     Dates: start: 201912
  39. PROMEGESTONE [Suspect]
     Active Substance: PROMEGESTONE
     Dosage: UNK
     Route: 048
     Dates: start: 20210409

REACTIONS (20)
  - Meningioma [Recovered/Resolved with Sequelae]
  - Meningioma benign [Recovered/Resolved with Sequelae]
  - Partial seizures [Unknown]
  - Asthenia [Not Recovered/Not Resolved]
  - Aphasia [Unknown]
  - Cognitive disorder [Unknown]
  - Disturbance in attention [Unknown]
  - Impaired quality of life [Unknown]
  - Language disorder [Not Recovered/Not Resolved]
  - Mental disorder [Unknown]
  - Malaise [Unknown]
  - Oedema [Unknown]
  - Reading disorder [Unknown]
  - Meningioma surgery [Unknown]
  - Feeling abnormal [Unknown]
  - Fatigue [Unknown]
  - Executive dysfunction [Unknown]
  - Dysgraphia [Unknown]
  - Memory impairment [Unknown]
  - Poor quality sleep [Unknown]

NARRATIVE: CASE EVENT DATE: 20210906
